FAERS Safety Report 7110121-0 (Version None)
Quarter: 2010Q4

REPORT INFORMATION
  Report Type: 
  Country: None (occurrence: None)
  Receive Date: 20101118
  Receipt Date: 20101115
  Transmission Date: 20110411
  Serious: Yes (Death, Other)
  Sender: FDA-Public Use
  Company Number: PHHY2010US77652

PATIENT
  Sex: Male

DRUGS (4)
  1. STALEVO 100 [Suspect]
     Indication: PARKINSON'S DISEASE
     Dosage: 150 MG, 7 TIMES PER DAY
     Dates: start: 20100825
  2. AMANTADINE [Concomitant]
     Dosage: 100 MG DAILY
  3. PAXIL [Concomitant]
     Dosage: 20 MG DAILY
  4. MIRAPEX [Concomitant]
     Dosage: 3 TIMES DAILY

REACTIONS (2)
  - DEATH [None]
  - PARKINSON'S DISEASE [None]
